FAERS Safety Report 14978346 (Version 1)
Quarter: 2018Q2

REPORT INFORMATION
  Report Type: Spontaneous
  Country: FR (occurrence: FR)
  Receive Date: 20180606
  Receipt Date: 20180606
  Transmission Date: 20180711
  Serious: Yes (Hospitalization)
  Sender: FDA-Public Use
  Company Number: PHHY2018FR014705

PATIENT
  Age: 91 Year
  Sex: Male
  Weight: 70 kg

DRUGS (4)
  1. BACTRIM [Suspect]
     Active Substance: SULFAMETHOXAZOLE\TRIMETHOPRIM
     Indication: ANTIFUNGAL PROPHYLAXIS
     Dosage: PR?VENTION PNEUMOCYSTIS
     Route: 065
  2. LANSOPRAZOLE. [Suspect]
     Active Substance: LANSOPRAZOLE
     Indication: PROPHYLAXIS AGAINST GASTROINTESTINAL ULCER
     Route: 065
  3. MABTHERA [Suspect]
     Active Substance: RITUXIMAB
     Indication: GRANULOMATOSIS WITH POLYANGIITIS
     Dosage: 3 PERFUSIONS 08/01/2018-01/03/2018-08/03/2018
     Route: 065
     Dates: start: 20180108, end: 20180301
  4. MABTHERA [Suspect]
     Active Substance: RITUXIMAB
     Dosage: 3 PERFUSIONS 08/01/2018-01/03/2018-08/03/2018
     Route: 065
     Dates: start: 20180301, end: 20180308

REACTIONS (1)
  - Neutropenia [Not Recovered/Not Resolved]

NARRATIVE: CASE EVENT DATE: 20180312
